FAERS Safety Report 5670962-3 (Version None)
Quarter: 2008Q2

REPORT INFORMATION
  Report Type: 
  Country: None (occurrence: None)
  Receive Date: 20080305
  Receipt Date: 20071011
  Transmission Date: 20081010
  Serious: Yes (Hospitalization)
  Sender: FDA-Public Use
  Company Number: BDI-010325

PATIENT
  Age: 63 Year
  Sex: Male

DRUGS (1)
  1. ISOVUE-370 [Suspect]
     Indication: CARDIAC VENTRICULOGRAM
     Dosage: 32ML ONCE INTRA-ARTERIAL
     Route: 013
     Dates: start: 20070927, end: 20070927

REACTIONS (1)
  - HYPERSENSITIVITY [None]
